FAERS Safety Report 4778495-3 (Version None)
Quarter: 2005Q3

REPORT INFORMATION
  Report Type: 
  Country: None (occurrence: None)
  Receive Date: 20050922
  Receipt Date: 20050909
  Transmission Date: 20060218
  Serious: Yes (Other)
  Sender: FDA-Public Use
  Company Number: 2005125896

PATIENT
  Sex: Female
  Weight: 53.5244 kg

DRUGS (5)
  1. PROCARDIA [Suspect]
     Indication: ANGINA PECTORIS
     Dosage: 10 MG AS NECESSARY, ORAL
     Route: 048
  2. NIMOTOP [Suspect]
     Indication: ILL-DEFINED DISORDER
  3. CALCIUM GLUCONATE [Concomitant]
  4. PENTOXIFYLLINE [Concomitant]
  5. MAXZIDE (HYDROCHLOROTHIAZIDE) [Concomitant]

REACTIONS (10)
  - ABDOMINAL DISTENSION [None]
  - BLOOD PRESSURE DECREASED [None]
  - CEREBROVASCULAR ACCIDENT [None]
  - DRUG INEFFECTIVE [None]
  - HOT FLUSH [None]
  - MENORRHAGIA [None]
  - PHARMACEUTICAL PRODUCT COMPLAINT [None]
  - POOR QUALITY DRUG ADMINISTERED [None]
  - TRANSIENT ISCHAEMIC ATTACK [None]
  - WEIGHT INCREASED [None]
